FAERS Safety Report 18100791 (Version 1)
Quarter: 2020Q3

REPORT INFORMATION
  Report Type: Spontaneous
  Country: GB (occurrence: GB)
  Receive Date: 20200731
  Receipt Date: 20200731
  Transmission Date: 20201103
  Serious: Yes (Disabling, Other)
  Sender: FDA-Public Use
  Company Number: GB-ASCEND THERAPEUTICS US, LLC-2088018

PATIENT
  Age: 55 Year
  Sex: Female
  Weight: 65 kg

DRUGS (3)
  1. ESTROGEL [Suspect]
     Active Substance: ESTRADIOL
  2. ESTROGEL [Suspect]
     Active Substance: ESTRADIOL
     Indication: HORMONE REPLACEMENT THERAPY
     Route: 003
     Dates: start: 20180404
  3. OESTRODOSE (ESTRADIOL) (95)?INDICATION FOR USE: HRT [Suspect]
     Active Substance: ESTRADIOL
     Route: 003
     Dates: start: 20180404

REACTIONS (7)
  - Anxiety [Unknown]
  - Hyperhidrosis [Unknown]
  - Arthralgia [Unknown]
  - Menopausal symptoms [Not Recovered/Not Resolved]
  - Product substitution issue [Unknown]
  - Fatigue [Unknown]
  - Depression [Unknown]

NARRATIVE: CASE EVENT DATE: 20200604
